FAERS Safety Report 18939795 (Version 1)
Quarter: 2021Q1

REPORT INFORMATION
  Report Type: Spontaneous
  Country: US (occurrence: US)
  Receive Date: 20210225
  Receipt Date: 20210225
  Transmission Date: 20210420
  Serious: Yes (Other)
  Sender: FDA-Public Use
  Company Number: US-GLAXOSMITHKLINE-US2021GSK005270

PATIENT
  Sex: Male

DRUGS (6)
  1. RANITIDINE. [Suspect]
     Active Substance: RANITIDINE
     Indication: URTICARIA
  2. RANITIDINE. [Suspect]
     Active Substance: RANITIDINE
     Indication: PRURITUS
  3. RANITIDINE. [Suspect]
     Active Substance: RANITIDINE
     Indication: URTICARIA
  4. RANITIDINE. [Suspect]
     Active Substance: RANITIDINE
     Indication: PRURITUS
  5. RANITIDINE. [Suspect]
     Active Substance: RANITIDINE
     Indication: MULTIPLE ALLERGIES
     Dosage: 150 MG, QD
     Route: 065
     Dates: start: 201002, end: 201805
  6. RANITIDINE. [Suspect]
     Active Substance: RANITIDINE
     Indication: MULTIPLE ALLERGIES
     Dosage: 150 MG, QD
     Route: 065
     Dates: start: 201002, end: 201805

REACTIONS (2)
  - Prostate cancer [Unknown]
  - Skin cancer [Unknown]
